FAERS Safety Report 10806455 (Version 1)
Quarter: 2015Q1

REPORT INFORMATION
  Report Type: Report from Study
  Country: US (occurrence: US)
  Receive Date: 20150217
  Receipt Date: 20150217
  Transmission Date: 20150721
  Serious: No
  Sender: FDA-Public Use
  Company Number: US-ABBVIE-14K-163-1239106-00

PATIENT
  Age: 46 Year
  Sex: Female

DRUGS (10)
  1. CALCIUM [Concomitant]
     Active Substance: CALCIUM
     Indication: PRODUCT USED FOR UNKNOWN INDICATION
  2. PROAIR HFA [Concomitant]
     Active Substance: ALBUTEROL SULFATE
     Indication: PRODUCT USED FOR UNKNOWN INDICATION
     Dosage: AS EMERGENCY INHALER
  3. FLUOXETINE [Concomitant]
     Active Substance: FLUOXETINE\FLUOXETINE HYDROCHLORIDE
     Indication: ANXIETY
  4. HUMIRA [Suspect]
     Active Substance: ADALIMUMAB
     Indication: RHEUMATOID ARTHRITIS
     Dates: start: 20140319
  5. VESICARE [Concomitant]
     Active Substance: SOLIFENACIN SUCCINATE
     Indication: URINARY INCONTINENCE
  6. HYDROCODONE [Concomitant]
     Active Substance: HYDROCODONE
     Indication: PAIN
     Dosage: AS NEEDED NORMALLY TWO TIMES IN A DAY
  7. DICLOFENACNATRIUM/MISOPROSTOL DELPHI [Concomitant]
     Indication: PRODUCT USED FOR UNKNOWN INDICATION
     Dosage: 75 MG/200 MCG
  8. ADVAIR HFA [Concomitant]
     Active Substance: FLUTICASONE PROPIONATE\SALMETEROL XINAFOATE
     Indication: PRODUCT USED FOR UNKNOWN INDICATION
  9. SINGULAIR [Concomitant]
     Active Substance: MONTELUKAST SODIUM
     Indication: SEASONAL ALLERGY
  10. VITAMINS NOS [Concomitant]
     Active Substance: VITAMINS
     Indication: PRODUCT USED FOR UNKNOWN INDICATION

REACTIONS (3)
  - Injection site pain [Recovered/Resolved]
  - Injection site haemorrhage [Recovered/Resolved]
  - Injection site pain [Recovered/Resolved]

NARRATIVE: CASE EVENT DATE: 20140430
